FAERS Safety Report 8482813-2 (Version None)
Quarter: 2012Q3

REPORT INFORMATION
  Report Type: 
  Country: None (occurrence: None)
  Receive Date: 20120702
  Receipt Date: 20120615
  Transmission Date: 20120928
  Serious: Yes (Other)
  Sender: FDA-Public Use
  Company Number: US-ASTRAZENECA-2012SE43496

PATIENT
  Age: 59 Year
  Sex: Female

DRUGS (2)
  1. ONGLYZA [Suspect]
     Route: 048
  2. NEXIUM [Suspect]
     Route: 048

REACTIONS (4)
  - IMMOBILE [None]
  - SLEEP APNOEA SYNDROME [None]
  - HIATUS HERNIA [None]
  - BACK DISORDER [None]
